FAERS Safety Report 17023051 (Version 1)
Quarter: 2019Q4

REPORT INFORMATION
  Report Type: Spontaneous
  Country: CA (occurrence: CA)
  Receive Date: 20191112
  Receipt Date: 20191112
  Transmission Date: 20200122
  Serious: Yes (Other)
  Sender: FDA-Public Use
  Company Number: NVSC2019CA029376

PATIENT
  Sex: Female

DRUGS (11)
  1. PANTOPRAZOLE SODIUM FOR INJECTION [Suspect]
     Active Substance: PANTOPRAZOLE SODIUM
     Indication: PRODUCT USED FOR UNKNOWN INDICATION
     Dosage: 40 MG, QD
     Route: 065
  2. LORAZEPAM. [Suspect]
     Active Substance: LORAZEPAM
     Indication: ANXIETY
     Dosage: 1 MG, PRN
     Route: 065
  3. METHOTREXATE. [Suspect]
     Active Substance: METHOTREXATE
     Indication: PRODUCT USED FOR UNKNOWN INDICATION
     Dosage: 15 MG, QW
     Route: 065
     Dates: start: 2015, end: 2016
  4. CODEINE [Concomitant]
     Active Substance: CODEINE
     Indication: PRODUCT USED FOR UNKNOWN INDICATION
     Dosage: UNK
     Route: 065
  5. LEFLUNOMIDE 10 MG FILM-COATED TABLETS [Suspect]
     Active Substance: LEFLUNOMIDE
     Indication: PRODUCT USED FOR UNKNOWN INDICATION
     Dosage: 20 MG, QD
     Route: 065
     Dates: start: 201605
  6. ENBREL [Suspect]
     Active Substance: ETANERCEPT
     Indication: PRODUCT USED FOR UNKNOWN INDICATION
     Dosage: 50 MG, QMO
     Route: 058
     Dates: start: 2010, end: 2019
  7. COD LIVER OIL [Suspect]
     Active Substance: COD LIVER OIL
     Indication: PRODUCT USED FOR UNKNOWN INDICATION
     Dosage: UNK
     Route: 065
     Dates: start: 2019
  8. GABAPENTIN. [Suspect]
     Active Substance: GABAPENTIN
     Indication: PRODUCT USED FOR UNKNOWN INDICATION
     Dosage: 400 MG, TID
     Route: 065
  9. CYMBALTA [Concomitant]
     Active Substance: DULOXETINE HYDROCHLORIDE
     Indication: PRODUCT USED FOR UNKNOWN INDICATION
     Dosage: 60 MG
     Route: 065
  10. SIMPONI [Suspect]
     Active Substance: GOLIMUMAB
     Indication: PRODUCT USED FOR UNKNOWN INDICATION
     Dosage: 50 MG, QMO
     Route: 065
     Dates: start: 201811, end: 201907
  11. SIMPONI [Suspect]
     Active Substance: GOLIMUMAB
     Dosage: UNK
     Route: 065
     Dates: start: 201910

REACTIONS (33)
  - Drug hypersensitivity [Unknown]
  - Inflammatory pain [Unknown]
  - Bone density decreased [Unknown]
  - Psoriasis [Unknown]
  - Polyarthritis [Unknown]
  - Back pain [Unknown]
  - Conjunctivitis [Unknown]
  - Pain in extremity [Not Recovered/Not Resolved]
  - Drug intolerance [Unknown]
  - Radiculopathy [Unknown]
  - Periorbital swelling [Unknown]
  - Trigger finger [Recovering/Resolving]
  - Fatigue [Unknown]
  - Fibromyalgia [Unknown]
  - Pathological fracture [Unknown]
  - Diarrhoea [Unknown]
  - Pain [Unknown]
  - Peripheral swelling [Unknown]
  - Post-traumatic neck syndrome [Unknown]
  - Sciatica [Unknown]
  - Iridocyclitis [Unknown]
  - Anaesthetic complication [Recovering/Resolving]
  - Inflammation [Unknown]
  - Swelling face [Not Recovered/Not Resolved]
  - Therapeutic product effect incomplete [Unknown]
  - Aphthous ulcer [Unknown]
  - Reiter^s syndrome [Unknown]
  - Cerebrospinal fluid leakage [Unknown]
  - Arthritis [Unknown]
  - Ligament sprain [Unknown]
  - Poor quality sleep [Unknown]
  - Arthralgia [Unknown]
  - Headache [Unknown]

NARRATIVE: CASE EVENT DATE: 2007
